FAERS Safety Report 18585266 (Version 1)
Quarter: 2020Q4

REPORT INFORMATION
  Report Type: Spontaneous
  Country: ID (occurrence: ID)
  Receive Date: 20201207
  Receipt Date: 20201207
  Transmission Date: 20210114
  Serious: Yes (Death)
  Sender: FDA-Public Use
  Company Number: ID-JNJFOC-20201206491

PATIENT
  Age: 44 Year
  Sex: Male
  Weight: 45 kg

DRUGS (1)
  1. SIRTURO [Suspect]
     Active Substance: BEDAQUILINE FUMARATE
     Indication: TUBERCULOSIS
     Route: 048
     Dates: start: 202007

REACTIONS (3)
  - Nausea [Unknown]
  - Death [Fatal]
  - Transaminases increased [Unknown]
